FAERS Safety Report 13875549 (Version 1)
Quarter: 2017Q3

REPORT INFORMATION
  Report Type: Report from Study
  Country: GB (occurrence: GB)
  Receive Date: 20170817
  Receipt Date: 20170817
  Transmission Date: 20171127
  Serious: Yes (Hospitalization)
  Sender: FDA-Public Use
  Company Number: GB-UCBSA-2017023339

PATIENT
  Sex: Male

DRUGS (3)
  1. CLOBAZAM [Concomitant]
     Active Substance: CLOBAZAM
     Indication: PRODUCT USED FOR UNKNOWN INDICATION
     Dosage: 20 MG
  2. CLOBAZAM [Concomitant]
     Active Substance: CLOBAZAM
     Dosage: 30 MG DAILY
  3. LEVETIRACETAM. [Suspect]
     Active Substance: LEVETIRACETAM
     Indication: EPILEPSY
     Dosage: 3000 MG
     Dates: start: 2013

REACTIONS (4)
  - Seizure cluster [Unknown]
  - Mood swings [Unknown]
  - Fear [Unknown]
  - Drug ineffective [Unknown]
